FAERS Safety Report 13565176 (Version 1)
Quarter: 2017Q2

REPORT INFORMATION
  Report Type: Spontaneous
  Country: FR (occurrence: FR)
  Receive Date: 20170519
  Receipt Date: 20170519
  Transmission Date: 20170830
  Serious: Yes (Hospitalization)
  Sender: FDA-Public Use
  Company Number: FR-SA-2017SA089419

PATIENT
  Age: 60 Year
  Sex: Male

DRUGS (21)
  1. LERCAN [Concomitant]
     Active Substance: LERCANIDIPINE
  2. BACLOFEN. [Concomitant]
     Active Substance: BACLOFEN
  3. LANTUS [Suspect]
     Active Substance: INSULIN GLARGINE
     Indication: DIABETES MELLITUS
     Route: 058
     Dates: start: 2016
  4. ATORVASTATIN [Concomitant]
     Active Substance: ATORVASTATIN
  5. LYRICA [Concomitant]
     Active Substance: PREGABALIN
  6. TOVIAZ [Concomitant]
     Active Substance: FESOTERODINE FUMARATE
  7. EDUCTYL [Concomitant]
     Active Substance: POTASSIUM BITARTRATE\SODIUM BICARBONATE
  8. HUMALOG [Suspect]
     Active Substance: INSULIN LISPRO
     Indication: DIABETES MELLITUS
     Route: 058
     Dates: start: 2016
  9. RAMIPRIL. [Concomitant]
     Active Substance: RAMIPRIL
  10. MOVICOL [Concomitant]
     Active Substance: POLYETHYLENE GLYCOL 3350\POTASSIUM CHLORIDE\SODIUM BICARBONATE\SODIUM CHLORIDE
  11. CLOPIDOGREL [Concomitant]
     Active Substance: CLOPIDOGREL BISULFATE
  12. OXYNORM [Concomitant]
     Active Substance: OXYCODONE HYDROCHLORIDE
  13. IPRATROPIUM BROMIDE\FENOTEROL HYDROBROMIDE [Concomitant]
     Active Substance: FENOTEROL HYDROBROMIDE\IPRATROPIUM BROMIDE
  14. KARDEGIC [Concomitant]
     Active Substance: ASPIRIN LYSINE
  15. OXYCONTIN [Concomitant]
     Active Substance: OXYCODONE HYDROCHLORIDE
  16. EUROBIOL [Concomitant]
  17. DULOXETINE. [Concomitant]
     Active Substance: DULOXETINE
  18. TAMSULOSIN [Concomitant]
     Active Substance: TAMSULOSIN
  19. PANTOPRAZOLE [Concomitant]
     Active Substance: PANTOPRAZOLE
  20. ONBREZ [Concomitant]
     Active Substance: INDACATEROL
  21. EMLA [Concomitant]
     Active Substance: LIDOCAINE\PRILOCAINE

REACTIONS (2)
  - Hypoglycaemia [Recovered/Resolved]
  - Loss of consciousness [Recovered/Resolved]

NARRATIVE: CASE EVENT DATE: 20170213
